FAERS Safety Report 9627143 (Version 1)
Quarter: 2013Q4

REPORT INFORMATION
  Report Type: Spontaneous
  Country: DK (occurrence: FR)
  Receive Date: 20131016
  Receipt Date: 20131016
  Transmission Date: 20140711
  Serious: Yes (Hospitalization)
  Sender: FDA-Public Use
  Company Number: FR-FRI-1000049994

PATIENT
  Age: 92 Year
  Sex: Female

DRUGS (4)
  1. ESCITALOPRAM [Suspect]
     Indication: DEPRESSION
     Dosage: 1 DF
     Route: 048
     Dates: end: 20121008
  2. COTAREG [Concomitant]
  3. VASTAREL [Concomitant]
  4. KARDEGIC [Concomitant]

REACTIONS (3)
  - Withdrawal syndrome [Recovered/Resolved]
  - Confusional state [Recovered/Resolved]
  - Agitation [Recovered/Resolved]
